FAERS Safety Report 10025991 (Version 2)
Quarter: 2014Q2

REPORT INFORMATION
  Report Type: Spontaneous
  Country: NL (occurrence: None)
  Receive Date: 20140318
  Receipt Date: 20140520
  Transmission Date: 20141212
  Serious: Yes (Hospitalization)
  Sender: FDA-Public Use
  Company Number: 2014AP001838

PATIENT
  Age: 53 Year
  Sex: Male
  Weight: 98 kg

DRUGS (4)
  1. CARBAMAZEPINE (CARBAMAZEPINE) [Suspect]
     Indication: EPILEPSY
  2. RIVAROXABAN [Suspect]
     Indication: THROMBOSIS PROPHYLAXIS
  3. CLOBAZAM (CLOBAZAM) [Concomitant]
  4. DALTEPARIN SODIUM (DALTEPARIN SODIUM) [Concomitant]

REACTIONS (5)
  - Drug interaction [None]
  - Pulmonary embolism [None]
  - Pleural effusion [None]
  - Blood pressure increased [None]
  - Heart rate decreased [None]
